FAERS Safety Report 12705176 (Version 2)
Quarter: 2016Q3

REPORT INFORMATION
  Report Type: Spontaneous
  Country: US (occurrence: US)
  Receive Date: 20160831
  Receipt Date: 20160912
  Transmission Date: 20161109
  Serious: No
  Sender: FDA-Public Use
  Company Number: US-ASTRAZENECA-2016SE87220

PATIENT
  Age: 18470 Day
  Sex: Female
  Weight: 69.9 kg

DRUGS (2)
  1. SYMBICORT [Suspect]
     Active Substance: BUDESONIDE\FORMOTEROL FUMARATE DIHYDRATE
     Indication: CHRONIC OBSTRUCTIVE PULMONARY DISEASE
     Dosage: 160-4.5 MCG, TWO PUFFS TWICE A DAY, TWO PUFFS IN THE MORNING AND TWO
     Route: 055
  2. SYMBICORT [Suspect]
     Active Substance: BUDESONIDE\FORMOTEROL FUMARATE DIHYDRATE
     Indication: ASTHMA
     Dosage: 160-4.5 MCG, TWO PUFFS TWICE A DAY, TWO PUFFS IN THE MORNING AND TWO
     Route: 055

REACTIONS (2)
  - Retching [Unknown]
  - Product quality issue [Unknown]

NARRATIVE: CASE EVENT DATE: 20160810
